FAERS Safety Report 26216592 (Version 1)
Quarter: 2025Q4

REPORT INFORMATION
  Report Type: Spontaneous
  Country: US (occurrence: US)
  Receive Date: 20251231
  Receipt Date: 20251231
  Transmission Date: 20260117
  Serious: No
  Sender: SCIEGEN PHARMACEUTICALS INC
  Company Number: US-SCIEGENP-2025SCSPO00387

PATIENT
  Age: 71 Year
  Sex: Female

DRUGS (4)
  1. FLUOXETINE [Suspect]
     Active Substance: FLUOXETINE HYDROCHLORIDE
     Indication: Product used for unknown indication
     Route: 065
  2. PREGABALIN [Suspect]
     Active Substance: PREGABALIN
     Indication: Product used for unknown indication
     Route: 065
  3. PREGABALIN [Suspect]
     Active Substance: PREGABALIN
     Dosage: REDUCING THE DOSE BY ABOUT 25% EACH WEEK
     Route: 065
  4. LORAZEPAM [Suspect]
     Active Substance: LORAZEPAM
     Indication: Product used for unknown indication
     Route: 065

REACTIONS (9)
  - Balance disorder [Unknown]
  - Memory impairment [Unknown]
  - Dizziness [Unknown]
  - Disorientation [Unknown]
  - Eye contusion [Unknown]
  - Fall [Unknown]
  - Head injury [Unknown]
  - Fear of death [Unknown]
  - Drug interaction [Unknown]
